FAERS Safety Report 13782098 (Version 1)
Quarter: 2017Q3

REPORT INFORMATION
  Report Type: Report from Study
  Country: CA (occurrence: CA)
  Receive Date: 20170724
  Receipt Date: 20170724
  Transmission Date: 20171127
  Serious: Yes (Death, Other)
  Sender: FDA-Public Use
  Company Number: CA-AMGEN-CANSL2017080656

PATIENT
  Age: 55 Year
  Sex: Female

DRUGS (4)
  1. XGEVA [Suspect]
     Active Substance: DENOSUMAB
     Indication: BREAST CANCER
     Dosage: 120 MG/1.7ML VIAL
     Route: 065
     Dates: start: 20160927
  2. MORPHINE [Concomitant]
     Active Substance: MORPHINE
  3. RISPERDAL [Concomitant]
     Active Substance: RISPERIDONE
  4. EPREX [Concomitant]
     Active Substance: ERYTHROPOIETIN
     Indication: RED BLOOD CELL COUNT DECREASED

REACTIONS (6)
  - Brain neoplasm [Fatal]
  - Hepatic failure [Fatal]
  - White blood cell count decreased [Not Recovered/Not Resolved]
  - Malaise [Unknown]
  - Breast cancer metastatic [Fatal]
  - Haemoglobin decreased [Unknown]
